FAERS Safety Report 4700292-5 (Version None)
Quarter: 2005Q2

REPORT INFORMATION
  Report Type: 
  Country: None (occurrence: None)
  Receive Date: 20050627
  Receipt Date: 20050606
  Transmission Date: 20051028
  Serious: Yes (Hospitalization, Other)
  Sender: FDA-Public Use
  Company Number: JP-MERCK-0506USA01242

PATIENT
  Age: 74 Year
  Sex: Female

DRUGS (5)
  1. PEPCID RPD [Suspect]
     Route: 048
  2. COZAAR [Suspect]
     Route: 048
  3. ITOROL [Suspect]
     Route: 048
  4. ASPIRIN [Suspect]
     Route: 048
  5. LASIX [Suspect]
     Route: 065

REACTIONS (4)
  - CARDIAC FAILURE [None]
  - HEPATOCELLULAR DAMAGE [None]
  - LIVER DISORDER [None]
  - MYOCARDIAL INFARCTION [None]
